FAERS Safety Report 5710826-X (Version None)
Quarter: 2008Q2

REPORT INFORMATION
  Report Type: 
  Country: None (occurrence: None)
  Receive Date: 20080415
  Receipt Date: 20080402
  Transmission Date: 20081010
  Serious: Yes (Life-Threatening, Hospitalization, Disabling)
  Sender: FDA-Public Use
  Company Number: 2008JP000984

PATIENT
  Age: 51 Year
  Sex: Female
  Weight: 44.4 kg

DRUGS (18)
  1. PROGRAF [Suspect]
     Indication: BONE MARROW TRANSPLANT
     Dosage: 1 MG, CONTINUOUS, IV DRIP
     Route: 041
     Dates: start: 20060921
  2. PROGRAF [Suspect]
     Indication: BONE MARROW TRANSPLANT
     Dosage: ORAL
     Route: 048
  3. FOSCAVIR [Suspect]
     Indication: ENCEPHALITIS HERPES
     Dosage: 3600 MG, BID, IV NOS; 3600 MG, UID/QD, IV NOS
     Route: 042
     Dates: start: 20061029, end: 20061107
  4. FOSCAVIR [Suspect]
     Indication: ENCEPHALITIS HERPES
     Dosage: 3600 MG, BID, IV NOS; 3600 MG, UID/QD, IV NOS
     Route: 042
     Dates: start: 20061108, end: 20061112
  5. MEROPEN(MEROPENEM) INJECTION [Suspect]
     Indication: FEBRILE NEUTROPENIA
     Dosage: 1 G, BID, IV NOS
     Route: 042
     Dates: start: 20061003, end: 20061126
  6. VANCOMYCIN [Suspect]
     Indication: FEBRILE NEUTROPENIA
     Dosage: 1 G, BID, IV NOS
     Route: 042
     Dates: start: 20061002, end: 20061024
  7. SOLU-MEDROL [Suspect]
     Indication: ACUTE GRAFT VERSUS HOST DISEASE
     Dosage: 30 MG, BID, IV NOS
     Route: 042
     Dates: start: 20061017, end: 20061108
  8. METHOTREXATE [Concomitant]
  9. PREDNISOLONE [Concomitant]
  10. GANCICLOVIR [Concomitant]
  11. GAMMA GLOBULIN (IMMUNOGLOBIN HUMAN NORMAL) [Concomitant]
  12. ACYCLOVIR [Concomitant]
  13. FUNGUARD (MICAFUNGIN) INJECTION [Concomitant]
  14. OMEPRAL INJECTION [Concomitant]
  15. MAGNESIUM SULFATE (MAGENSIUM SULFATE) INJECTION [Concomitant]
  16. KCL (POTASSIUM CHLORIDE) INJECTION [Concomitant]
  17. HUMULIN R (INSULIN HUMAN) INJECTION [Concomitant]
  18. DENOSINE (GANCICLOVIR) INJECTION [Concomitant]

REACTIONS (20)
  - ACUTE GRAFT VERSUS HOST DISEASE [None]
  - ALTERED STATE OF CONSCIOUSNESS [None]
  - AMNESIA [None]
  - APNOEA [None]
  - BACK PAIN [None]
  - CEREBRAL HAEMORRHAGE [None]
  - DISORIENTATION [None]
  - DYSGEUSIA [None]
  - DYSLALIA [None]
  - ENCEPHALITIS HERPES [None]
  - ERYTHEMA [None]
  - FACIAL PALSY [None]
  - HEPATIC FUNCTION ABNORMAL [None]
  - PYREXIA [None]
  - RENAL SALT-WASTING SYNDROME [None]
  - RENAL TUBULAR DISORDER [None]
  - RESPIRATORY ACIDOSIS [None]
  - RESPIRATORY FAILURE [None]
  - SENSORY DISTURBANCE [None]
  - WEIGHT DECREASED [None]
